FAERS Safety Report 24351295 (Version 2)
Quarter: 2024Q3

REPORT INFORMATION
  Report Type: Spontaneous
  Country: IR (occurrence: IR)
  Receive Date: 20240923
  Receipt Date: 20240930
  Transmission Date: 20241016
  Serious: Yes (Death, Hospitalization, Other)
  Sender: SANOFI AVENTIS
  Company Number: IR-SA-2024SA274221

PATIENT
  Sex: Female

DRUGS (1)
  1. MYOZYME [Suspect]
     Active Substance: ALGLUCOSIDASE ALFA
     Indication: Glycogen storage disease type II
     Dosage: 20 MG/KG
     Dates: start: 202409, end: 20240909

REACTIONS (4)
  - Cardiac failure [Fatal]
  - Cardiomyopathy [Unknown]
  - Cardiomegaly [Unknown]
  - Conduction disorder [Unknown]
